FAERS Safety Report 12889616 (Version 1)
Quarter: 2016Q4

REPORT INFORMATION
  Report Type: Spontaneous
  Country: US (occurrence: US)
  Receive Date: 20161027
  Receipt Date: 20161027
  Transmission Date: 20170207
  Serious: Yes (Other)
  Sender: FDA-Public Use
  Company Number: US-ASTRAZENECA-2016SF10638

PATIENT
  Sex: Female
  Weight: 65.8 kg

DRUGS (2)
  1. LYNPARZA [Suspect]
     Active Substance: OLAPARIB
     Indication: OVARIAN CANCER STAGE III
     Dosage: FOUR PILLS TWICE A DAY HALF THE DOSE
     Route: 048
  2. LYNPARZA [Suspect]
     Active Substance: OLAPARIB
     Indication: OVARIAN CANCER STAGE III
     Route: 048
     Dates: start: 201511

REACTIONS (3)
  - Malignant neoplasm progression [Unknown]
  - Neoplasm [Unknown]
  - Product use issue [Unknown]
